FAERS Safety Report 16383084 (Version 1)
Quarter: 2019Q2

REPORT INFORMATION
  Report Type: Spontaneous
  Country: BE (occurrence: BE)
  Receive Date: 20190603
  Receipt Date: 20190603
  Transmission Date: 20190711
  Serious: Yes (Hospitalization)
  Sender: FDA-Public Use
  Company Number: PHHY2019BE121920

PATIENT
  Age: 70 Year
  Sex: Male
  Weight: 47 kg

DRUGS (15)
  1. PACLITAXEL. [Suspect]
     Active Substance: PACLITAXEL
     Indication: NON-SMALL CELL LUNG CANCER
     Dosage: 312 MG, Q3W
     Route: 042
     Dates: start: 20190115
  2. CARBOPLATIN. [Suspect]
     Active Substance: CARBOPLATIN
     Indication: NON-SMALL CELL LUNG CANCER
     Dosage: 641 MG, Q3W
     Route: 042
     Dates: start: 20190115
  3. CLEXANE [Concomitant]
     Active Substance: ENOXAPARIN SODIUM
     Indication: PROPHYLAXIS
     Dosage: 20 MG, QD
     Route: 058
     Dates: start: 20190315
  4. STEOVIT D3 [Concomitant]
     Active Substance: CALCIUM CARBONATE\CHOLECALCIFEROL
     Indication: BONE LESION
     Dosage: 1 G, QD (800 U)
     Route: 048
  5. NIQUITIN [Concomitant]
     Active Substance: NICOTINE
     Indication: PRODUCT USED FOR UNKNOWN INDICATION
     Dosage: 7 MG, QD
     Route: 062
     Dates: start: 20190101
  6. TAMSULOSINE [Concomitant]
     Active Substance: TAMSULOSIN HYDROCHLORIDE
     Indication: BENIGN PROSTATIC HYPERPLASIA
     Dosage: 4 MG, QD
     Route: 048
  7. PANTOMED [Concomitant]
     Indication: PROPHYLAXIS
     Dosage: 40 MG, QD
     Route: 048
  8. TRANSTEC [Concomitant]
     Active Substance: BUPRENORPHINE
     Indication: PAIN
     Dosage: 1 OT, Q72H (52, 5 MICROGRAM/H)
     Route: 062
  9. MEDROL [Concomitant]
     Active Substance: METHYLPREDNISOLONE
     Indication: PRODUCT USED FOR UNKNOWN INDICATION
     Dosage: 32 MG, QD
     Route: 048
  10. BEVACIZUMAB. [Suspect]
     Active Substance: BEVACIZUMAB
     Indication: NON-SMALL CELL LUNG CANCER
     Route: 065
  11. XGEVA [Concomitant]
     Active Substance: DENOSUMAB
     Indication: BONE LESION
     Dosage: 120 MG, Q4W
     Route: 058
  12. DAFALGAN FORTE [Concomitant]
     Indication: PYREXIA
     Route: 065
  13. BISOPROLOL [Concomitant]
     Active Substance: BISOPROLOL
     Indication: PRODUCT USED FOR UNKNOWN INDICATION
     Dosage: 2 MG, QD (5 MG)
     Route: 048
  14. ATEZOLIZUMAB. [Suspect]
     Active Substance: ATEZOLIZUMAB
     Indication: NON-SMALL CELL LUNG CANCER
     Route: 042
  15. DAFALGAN FORTE [Concomitant]
     Indication: PAIN
     Dosage: 4 G, QD
     Route: 048
     Dates: start: 20190315

REACTIONS (3)
  - Haematotoxicity [Unknown]
  - Febrile neutropenia [Not Recovered/Not Resolved]
  - Pneumonia [Not Recovered/Not Resolved]

NARRATIVE: CASE EVENT DATE: 20190315
